FAERS Safety Report 6779064-6 (Version None)
Quarter: 2010Q2

REPORT INFORMATION
  Report Type: 
  Country: None (occurrence: None)
  Receive Date: 20100618
  Receipt Date: 20100616
  Transmission Date: 20101027
  Serious: Yes (Death, Life-Threatening, Hospitalization)
  Sender: FDA-Public Use
  Company Number: GB-PFIZER INC-2006124240

PATIENT
  Age: 51 Year
  Sex: Female
  Weight: 44 kg

DRUGS (5)
  1. SUNITINIB MALATE [Suspect]
     Indication: RENAL CELL CARCINOMA
     Dosage: 50 MG, 1X/DAY
     Route: 048
     Dates: start: 20051207, end: 20060710
  2. LOPERAMIDE [Concomitant]
     Dosage: UNK
     Route: 048
     Dates: start: 20060217
  3. MORPHINE SULFATE [Concomitant]
     Dosage: UNK
     Route: 048
     Dates: start: 20050101
  4. FERROUS SULFATE TAB [Concomitant]
     Dosage: UNK
     Route: 048
     Dates: start: 20050101
  5. ACETAMINOPHEN [Concomitant]
     Dosage: UNK
     Route: 048
     Dates: start: 20050101

REACTIONS (4)
  - CONVULSION [None]
  - ENTEROVESICAL FISTULA [None]
  - GASTROINTESTINAL HAEMORRHAGE [None]
  - RESPIRATORY ARREST [None]
